FAERS Safety Report 4766853-2 (Version None)
Quarter: 2005Q3

REPORT INFORMATION
  Report Type: 
  Country: None (occurrence: None)
  Receive Date: 20050909
  Receipt Date: 20050902
  Transmission Date: 20060218
  Serious: Yes (Hospitalization)
  Sender: FDA-Public Use
  Company Number: LNL-100124-NL

PATIENT
  Age: 19 Year
  Sex: Female

DRUGS (8)
  1. ROCURONIUM BROMIDE [Suspect]
     Dosage: 20 MG ONCE INTRAVENOUS (NOS)
     Route: 042
     Dates: start: 19971020, end: 19971020
  2. MIDAZOLAM [Suspect]
  3. FENTANYL CITRATE [Suspect]
     Dosage: 100 MG ONCE
  4. PROPOFOL [Suspect]
     Dosage: 120 MG ONCE
     Dates: start: 19971020
  5. NITROUS OXIDE [Concomitant]
  6. SEVOFLURANE [Concomitant]
  7. NEOSTIGMINE [Concomitant]
  8. ATROPINE [Concomitant]

REACTIONS (1)
  - CONVULSION [None]
